FAERS Safety Report 21232641 (Version 2)
Quarter: 2022Q4

REPORT INFORMATION
  Report Type: Spontaneous
  Country: JP (occurrence: JP)
  Receive Date: 20220819
  Receipt Date: 20221007
  Transmission Date: 20230113
  Serious: Yes (Hospitalization)
  Sender: FDA-Public Use
  Company Number: JP-ABBVIE-22K-087-4508819-00

PATIENT
  Age: 70 Year
  Sex: Female

DRUGS (1)
  1. RINVOQ [Suspect]
     Active Substance: UPADACITINIB
     Indication: Rheumatoid arthritis
     Route: 048
     Dates: start: 20210802, end: 20220416

REACTIONS (4)
  - Femoral neck fracture [Recovered/Resolved]
  - Pleural effusion [Unknown]
  - Pericardial effusion [Unknown]
  - Fall [Unknown]

NARRATIVE: CASE EVENT DATE: 20220101
